FAERS Safety Report 6021694-3 (Version None)
Quarter: 2008Q4

REPORT INFORMATION
  Report Type: 
  Country: None (occurrence: None)
  Receive Date: 20081229
  Receipt Date: 20081219
  Transmission Date: 20090506
  Serious: Yes (Hospitalization)
  Sender: FDA-Public Use
  Company Number: FR-MERCK-0812FRA00080

PATIENT
  Age: 81 Year
  Sex: Female

DRUGS (13)
  1. ZOCOR [Suspect]
     Indication: HYPERCHOLESTEROLAEMIA
     Route: 048
     Dates: end: 20080613
  2. AMOXICILLIN AND CLAVULANATE POTASSIUM [Suspect]
     Indication: ERYSIPELAS
     Route: 048
     Dates: start: 20080613, end: 20080619
  3. HEPARIN CALCIUM [Suspect]
     Indication: PROPHYLAXIS
     Route: 058
     Dates: start: 20080614, end: 20080619
  4. TOBRAMYCIN [Suspect]
     Route: 047
     Dates: start: 20080613, end: 20080618
  5. LABETALOL HYDROCHLORIDE [Suspect]
     Indication: HYPERTENSION
     Route: 048
     Dates: end: 20080613
  6. HYZAAR [Suspect]
     Indication: HYPERTENSION
     Route: 048
     Dates: end: 20080613
  7. FUROSEMIDE [Suspect]
     Indication: HYPERTENSION
     Route: 048
     Dates: end: 20080613
  8. TERBUTALINE SULFATE [Concomitant]
  9. IPRATROPIUM BROMIDE [Concomitant]
  10. POTASSIUM CHLORIDE [Suspect]
     Indication: HYPOKALAEMIA
     Route: 048
     Dates: start: 20080613, end: 20080618
  11. ACETAMINOPHEN AND PROPOXYPHENE HYDROCHLORIDE [Suspect]
     Route: 065
     Dates: end: 20080613
  12. ANTHOCYANINS (UNSPECIFIED) [Suspect]
     Indication: VENOUS INSUFFICIENCY
     Route: 048
     Dates: end: 20080613
  13. LERCANIDIPINE HYDROCHLORIDE [Suspect]
     Indication: HYPERTENSION
     Route: 048
     Dates: end: 20080613

REACTIONS (2)
  - ACUTE GENERALISED EXANTHEMATOUS PUSTULOSIS [None]
  - TOXIC SKIN ERUPTION [None]
